FAERS Safety Report 25833714 (Version 1)
Quarter: 2025Q3

REPORT INFORMATION
  Report Type: Report from Study
  Country: US (occurrence: US)
  Receive Date: 20250922
  Receipt Date: 20250922
  Transmission Date: 20251021
  Serious: Yes (Other)
  Sender: ALEXION PHARMACEUTICALS
  Company Number: US-AstraZeneca-CH-00951233A

PATIENT

DRUGS (1)
  1. ULTOMIRIS [Suspect]
     Active Substance: RAVULIZUMAB-CWVZ
     Indication: Myasthenia gravis
     Route: 065

REACTIONS (7)
  - Bronchial disorder [Unknown]
  - Pyrexia [Unknown]
  - Vomiting [Unknown]
  - Chest discomfort [Unknown]
  - Neoplasm malignant [Unknown]
  - COVID-19 [Unknown]
  - Dysstasia [Unknown]
